FAERS Safety Report 10767601 (Version 4)
Quarter: 2015Q4

REPORT INFORMATION
  Report Type: Report from Study
  Country: BR (occurrence: BR)
  Receive Date: 20150205
  Receipt Date: 20151216
  Transmission Date: 20160304
  Serious: Yes (Hospitalization, Other)
  Sender: FDA-Public Use
  Company Number: BR-ABBVIE-15K-020-1330924-00

PATIENT
  Age: 29 Year
  Sex: Female
  Weight: 60 kg

DRUGS (8)
  1. DIPYRONE [Concomitant]
     Active Substance: DIPYRONE
     Indication: PAIN
     Route: 048
     Dates: start: 2012
  2. BUSCOPAN [Concomitant]
     Active Substance: BUTYLSCOPOLAMINE BROMIDE
     Indication: PAIN
     Route: 048
     Dates: start: 2012
  3. HUMIRA [Suspect]
     Active Substance: ADALIMUMAB
     Dosage: LOADING DOSE, WEEK TWO
     Route: 058
     Dates: start: 201201, end: 201201
  4. HUMIRA [Suspect]
     Active Substance: ADALIMUMAB
     Indication: CROHN^S DISEASE
     Dosage: LOADING DOSE, WEEK ZERO
     Route: 058
     Dates: start: 20120101, end: 20120101
  5. HUMIRA [Suspect]
     Active Substance: ADALIMUMAB
     Route: 058
     Dates: start: 2015
  6. MESALAZINE [Concomitant]
     Active Substance: MESALAMINE
     Indication: COLITIS ULCERATIVE
     Route: 048
     Dates: start: 20120101, end: 201501
  7. HUMIRA [Suspect]
     Active Substance: ADALIMUMAB
     Route: 058
     Dates: end: 201505
  8. AZATHIOPRINE. [Concomitant]
     Active Substance: AZATHIOPRINE
     Indication: CROHN^S DISEASE
     Route: 048
     Dates: start: 20120101

REACTIONS (18)
  - Implant site extravasation [Unknown]
  - Diarrhoea [Recovering/Resolving]
  - Implant site pain [Recovering/Resolving]
  - Anal fistula [Recovering/Resolving]
  - Anal abscess [Not Recovered/Not Resolved]
  - Intestinal perforation [Recovered/Resolved]
  - Vomiting [Recovering/Resolving]
  - Pulmonary oedema [Recovered/Resolved]
  - Diarrhoea [Recovered/Resolved]
  - Secretion discharge [Recovering/Resolving]
  - Implant site reaction [Recovering/Resolving]
  - Localised intraabdominal fluid collection [Recovered/Resolved]
  - Pain [Recovered/Resolved]
  - Post procedural infection [Recovering/Resolving]
  - Anal haemorrhage [Unknown]
  - Implant site oedema [Recovering/Resolving]
  - Crohn^s disease [Recovered/Resolved]
  - Vomiting [Recovered/Resolved]

NARRATIVE: CASE EVENT DATE: 2014
